FAERS Safety Report 20975641 (Version 1)
Quarter: 2022Q2

REPORT INFORMATION
  Report Type: Spontaneous
  Country: US (occurrence: US)
  Receive Date: 20220617
  Receipt Date: 20220617
  Transmission Date: 20220720
  Serious: No
  Sender: FDA-Public Use
  Company Number: US-BRISTOL-MYERS SQUIBB COMPANY-2022-054731

PATIENT
  Age: 69 Year
  Sex: Female
  Weight: 85.73 kg

DRUGS (1)
  1. REVLIMID [Suspect]
     Active Substance: LENALIDOMIDE
     Indication: Plasma cell myeloma
     Route: 048
     Dates: start: 20211007

REACTIONS (5)
  - Tremor [Unknown]
  - Blood glucose decreased [Unknown]
  - Gait disturbance [Unknown]
  - Decreased appetite [Unknown]
  - Peripheral swelling [Unknown]
